FAERS Safety Report 5828769-X (Version None)
Quarter: 2008Q3

REPORT INFORMATION
  Report Type: 
  Country: None (occurrence: None)
  Receive Date: 20080731
  Receipt Date: 20080721
  Transmission Date: 20090109
  Serious: Yes (Hospitalization)
  Sender: FDA-Public Use
  Company Number: US-MERCK-0807USA04093

PATIENT
  Age: 59 Year
  Sex: Female

DRUGS (5)
  1. VYTORIN [Suspect]
     Indication: BLOOD CHOLESTEROL INCREASED
     Route: 048
     Dates: start: 20030101
  2. VYTORIN [Suspect]
     Route: 048
     Dates: end: 20080601
  3. LORTAB [Concomitant]
     Indication: PAIN
     Route: 065
  4. PREDNISONE [Concomitant]
     Route: 065
  5. [THERAPY UNSPECIFIED] [Concomitant]
     Route: 065

REACTIONS (5)
  - EYE DISCHARGE [None]
  - HYPERHIDROSIS [None]
  - LACRIMATION INCREASED [None]
  - THROMBOSIS [None]
  - URINARY TRACT INFECTION [None]
